FAERS Safety Report 4761032-7 (Version None)
Quarter: 2005Q3

REPORT INFORMATION
  Report Type: 
  Country: None (occurrence: None)
  Receive Date: 20050901
  Receipt Date: 20050822
  Transmission Date: 20060218
  Serious: Yes (Death, Hospitalization)
  Sender: FDA-Public Use
  Company Number: ZICO001277

PATIENT
  Age: 46 Year
  Sex: Female

DRUGS (12)
  1. PRIALT [Suspect]
     Indication: PAIN
     Dosage: 0.416 MCG/HR INTRATHECAL
     Route: 037
     Dates: start: 20050101, end: 20050808
  2. HYDROMORPHONE HCL [Concomitant]
  3. NEURONTIN [Concomitant]
  4. METHADONE HCL [Concomitant]
  5. MORPHINE (MORPHINE HYDROCHLORIDE) [Concomitant]
  6. SOMA [Concomitant]
  7. EFFEXOR [Concomitant]
  8. ALDACTONE [Concomitant]
  9. NEXIUM [Concomitant]
  10. BIRTH CONTROL PILLS (BIRTH CONTROL PILLS) [Concomitant]
  11. DIFLUCAN [Concomitant]
  12. NYSTATIN [Concomitant]

REACTIONS (9)
  - BLOOD POTASSIUM INCREASED [None]
  - CONDITION AGGRAVATED [None]
  - CONFUSIONAL STATE [None]
  - CONTUSION [None]
  - FALL [None]
  - FUNGAL SEPSIS [None]
  - HYPOTENSION [None]
  - OEDEMA PERIPHERAL [None]
  - RENAL FAILURE [None]
